FAERS Safety Report 21023265 (Version 1)
Quarter: 2022Q2

REPORT INFORMATION
  Report Type: Spontaneous
  Country: US (occurrence: None)
  Receive Date: 20220629
  Receipt Date: 20220629
  Transmission Date: 20220720
  Serious: Yes (Hospitalization)
  Sender: FDA-Public Use
  Company Number: None

PATIENT
  Age: 75 Year
  Sex: Male
  Weight: 113.40 kg

DRUGS (2)
  1. LISINOPRIL [Suspect]
     Active Substance: LISINOPRIL
     Indication: Schizoaffective disorder
     Dosage: FREQUENCY : DAILY;?
     Route: 048
     Dates: start: 20010215, end: 20210327
  2. LITHIUM CARBONATE [Suspect]
     Active Substance: LITHIUM CARBONATE
     Indication: Hypertension
     Dosage: FREQUENCY : TWICE A DAY;?
     Route: 048
     Dates: start: 20150319

REACTIONS (6)
  - Toxicity to various agents [None]
  - Acute kidney injury [None]
  - Encephalopathy [None]
  - Asterixis [None]
  - Suicidal ideation [None]
  - Blood pressure increased [None]

NARRATIVE: CASE EVENT DATE: 20210327
